FAERS Safety Report 19031195 (Version 1)
Quarter: 2021Q1

REPORT INFORMATION
  Report Type: Spontaneous
  Country: US (occurrence: US)
  Receive Date: 20210319
  Receipt Date: 20210319
  Transmission Date: 20210420
  Serious: Yes (Other)
  Sender: FDA-Public Use
  Company Number: US-JNJFOC-20210326527

PATIENT
  Sex: Female
  Weight: 72.64 kg

DRUGS (3)
  1. XARELTO [Suspect]
     Active Substance: RIVAROXABAN
     Indication: ATRIAL FIBRILLATION
     Route: 048
  2. AMIODARONE [Concomitant]
     Active Substance: AMIODARONE
     Indication: PRODUCT USED FOR UNKNOWN INDICATION
  3. XARELTO [Suspect]
     Active Substance: RIVAROXABAN
     Indication: CEREBROVASCULAR ACCIDENT PROPHYLAXIS

REACTIONS (7)
  - Seizure [Unknown]
  - Inappropriate schedule of product administration [Unknown]
  - Paraesthesia [Unknown]
  - Hypoaesthesia [Unknown]
  - Rhinorrhoea [Unknown]
  - Gait disturbance [Unknown]
  - Off label use [Unknown]
